FAERS Safety Report 5752913-6 (Version None)
Quarter: 2008Q2

REPORT INFORMATION
  Report Type: 
  Country: None (occurrence: None)
  Receive Date: 20080529
  Receipt Date: 20080519
  Transmission Date: 20081010
  Serious: Yes (Other)
  Sender: FDA-Public Use
  Company Number: JP-PFIZER INC-2008044800

PATIENT

DRUGS (1)
  1. CELECOX [Suspect]
     Route: 048
     Dates: start: 20080510, end: 20080513

REACTIONS (1)
  - BLINDNESS [None]
